FAERS Safety Report 25158221 (Version 1)
Quarter: 2025Q2

REPORT INFORMATION
  Report Type: Report from Study
  Country: AE (occurrence: AE)
  Receive Date: 20250404
  Receipt Date: 20250404
  Transmission Date: 20250716
  Serious: Yes (Other)
  Sender: ROCHE
  Company Number: AE-ROCHE-10000241759

PATIENT
  Age: 71 Year
  Sex: Female

DRUGS (1)
  1. PHESGO [Suspect]
     Active Substance: HYALURONIDASE-ZZXF\PERTUZUMAB\TRASTUZUMAB
     Indication: Product used for unknown indication
     Route: 065

REACTIONS (6)
  - Ill-defined disorder [Unknown]
  - Actinic elastosis [Unknown]
  - Breast cancer metastatic [Unknown]
  - Central nervous system lesion [Unknown]
  - Metastases to bone [Unknown]
  - Metastases to the mediastinum [Unknown]

NARRATIVE: CASE EVENT DATE: 20231101
